FAERS Safety Report 10251117 (Version 3)
Quarter: 2015Q1

REPORT INFORMATION
  Report Type: Report from Study
  Country: JP (occurrence: JP)
  Receive Date: 20140620
  Receipt Date: 20150317
  Transmission Date: 20150720
  Serious: Yes (Hospitalization, Other)
  Sender: FDA-Public Use
  Company Number: JP-GILEAD-2014-0105612

PATIENT
  Age: 81 Year
  Sex: Female

DRUGS (30)
  1. PREDONINE [Concomitant]
     Active Substance: PREDNISOLONE\PREDNISOLONE ACETATE\PREDNISOLONE SODIUM SUCCINATE
     Route: 048
  2. MUCOSTA [Concomitant]
     Active Substance: REBAMIPIDE
     Route: 048
  3. TRAMCET [Concomitant]
     Active Substance: ACETAMINOPHEN\TRAMADOL
     Route: 048
  4. FERROMIA [Concomitant]
     Active Substance: FERROUS CITRATE
     Route: 048
     Dates: start: 20131101
  5. TRICHLORMETHIAZIDE [Concomitant]
     Active Substance: TRICHLORMETHIAZIDE
     Route: 048
     Dates: start: 20140306
  6. FUNGIZONE [Concomitant]
     Active Substance: AMPHOTERICIN B
     Route: 048
     Dates: start: 20140307, end: 20140320
  7. MICAMLO [Concomitant]
     Active Substance: AMLODIPINE BESYLATE\TELMISARTAN
     Route: 048
     Dates: start: 20131007, end: 20131204
  8. AIMIX [Concomitant]
     Active Substance: AMLODIPINE BESYLATE\IRBESARTAN
     Route: 048
     Dates: start: 20131205, end: 20140320
  9. FORTEO [Concomitant]
     Active Substance: TERIPARATIDE
     Route: 058
     Dates: start: 20140120
  10. AMBRISENTAN [Suspect]
     Active Substance: AMBRISENTAN
     Indication: PULMONARY ARTERIAL HYPERTENSION
     Dosage: 2.5 MG, QD
     Route: 048
     Dates: start: 20131008, end: 20131031
  11. ZOPICOOL [Concomitant]
     Active Substance: ZOPICLONE
     Route: 048
     Dates: end: 20131031
  12. ARICEPT [Concomitant]
     Active Substance: DONEPEZIL HYDROCHLORIDE
     Route: 048
  13. PAXIL [Concomitant]
     Active Substance: PAROXETINE HYDROCHLORIDE
     Route: 048
     Dates: start: 20131225, end: 20140120
  14. RISPERDAL [Concomitant]
     Active Substance: RISPERIDONE
     Route: 048
     Dates: start: 20140309, end: 20140318
  15. PROGRAF [Concomitant]
     Active Substance: TACROLIMUS\TACROLIMUS ANHYDROUS
     Route: 048
  16. NAPA [Concomitant]
     Active Substance: ACETAMINOPHEN
     Route: 048
  17. NAPA [Concomitant]
     Active Substance: ACETAMINOPHEN
     Route: 048
  18. LUPRAC [Concomitant]
     Active Substance: TORSEMIDE
     Route: 048
     Dates: end: 20140309
  19. ZOPICLONE [Concomitant]
     Active Substance: ZOPICLONE
     Route: 048
     Dates: start: 20131101
  20. ADALAT [Concomitant]
     Active Substance: NIFEDIPINE
     Route: 048
     Dates: start: 20140320
  21. ALMYLAR [Concomitant]
     Active Substance: ATENOLOL
     Route: 048
     Dates: start: 20140217, end: 20140311
  22. SEROQUEL [Concomitant]
     Active Substance: QUETIAPINE FUMARATE
     Route: 048
  23. PARIET [Concomitant]
     Active Substance: RABEPRAZOLE SODIUM
     Route: 048
  24. INFLUENZA VACCINE [Concomitant]
     Active Substance: INFLUENZA VIRUS VACCINE
     Indication: PROPHYLAXIS
     Route: 058
     Dates: start: 20131112, end: 20131112
  25. HERBESSER [Concomitant]
     Active Substance: DILTIAZEM HYDROCHLORIDE
     Route: 048
     Dates: start: 20140320
  26. ADCIRCA [Concomitant]
     Active Substance: TADALAFIL
     Indication: PULMONARY ARTERIAL HYPERTENSION
     Route: 048
  27. SELBEX [Concomitant]
     Active Substance: TEPRENONE
     Route: 048
  28. ATELEC [Concomitant]
     Active Substance: CILNIDIPINE
     Route: 048
     Dates: start: 20131112, end: 20140317
  29. FEBURIC [Concomitant]
     Active Substance: FEBUXOSTAT
     Route: 048
     Dates: start: 20140308
  30. OLMETEC [Concomitant]
     Active Substance: OLMESARTAN MEDOXOMIL
     Route: 048
     Dates: start: 20140320

REACTIONS (8)
  - Back pain [Recovering/Resolving]
  - Blood urine present [Not Recovered/Not Resolved]
  - Protein urine [Not Recovered/Not Resolved]
  - Gastrooesophageal reflux disease [Recovering/Resolving]
  - Anal polyp [Recovering/Resolving]
  - Anal haemorrhage [Recovering/Resolving]
  - Eczema asteatotic [Recovering/Resolving]
  - Oedema peripheral [Not Recovered/Not Resolved]

NARRATIVE: CASE EVENT DATE: 20131016
